FAERS Safety Report 6260593-9 (Version None)
Quarter: 2009Q3

REPORT INFORMATION
  Report Type: 
  Country: None (occurrence: None)
  Receive Date: 20090708
  Receipt Date: 20090629
  Transmission Date: 20100115
  Serious: Yes (Other)
  Sender: FDA-Public Use
  Company Number: GB-BAXTER-2009BH011015

PATIENT
  Age: 51 Year
  Sex: Male

DRUGS (12)
  1. CYCLOPHOSPHAMIDE [Suspect]
     Indication: B-CELL LYMPHOMA
     Route: 065
     Dates: start: 20040801
  2. IFOSFAMIDE [Suspect]
     Indication: DIFFUSE LARGE B-CELL LYMPHOMA
     Route: 065
     Dates: start: 20060301
  3. CARMUSTINE [Suspect]
     Indication: CHEMOTHERAPY
     Route: 065
     Dates: start: 20060801
  4. CYTARABINE [Suspect]
     Indication: DIFFUSE LARGE B-CELL LYMPHOMA
     Route: 065
     Dates: start: 20060301
  5. CYTARABINE [Suspect]
     Route: 065
     Dates: start: 20060801
  6. ETOPOSIDE [Suspect]
     Indication: DIFFUSE LARGE B-CELL LYMPHOMA
     Route: 065
     Dates: start: 20060301
  7. ETOPOSIDE [Suspect]
     Route: 065
     Dates: start: 20060801
  8. MELPHALAN HYDROCHLORIDE [Suspect]
     Indication: CHEMOTHERAPY
     Route: 065
     Dates: start: 20060801
  9. PREDNISOLONE [Suspect]
     Indication: B-CELL LYMPHOMA
     Route: 065
     Dates: start: 20040801
  10. RITUXIMAB [Suspect]
     Indication: B-CELL LYMPHOMA
     Route: 065
     Dates: start: 20060301
  11. RITUXIMAB [Suspect]
     Route: 065
     Dates: start: 20040801
  12. VINCRISTINE SULFATE GENERIC [Suspect]
     Indication: B-CELL LYMPHOMA
     Route: 065
     Dates: start: 20040801

REACTIONS (3)
  - CYTOMEGALOVIRUS ENTEROCOLITIS [None]
  - MALIGNANT NEOPLASM PROGRESSION [None]
  - MUCOSAL INFLAMMATION [None]
